FAERS Safety Report 5303437-1 (Version None)
Quarter: 2007Q2

REPORT INFORMATION
  Report Type: 
  Country: None (occurrence: None)
  Receive Date: 20070420
  Receipt Date: 20070412
  Transmission Date: 20071010
  Serious: Yes (Hospitalization)
  Sender: FDA-Public Use
  Company Number: FR-SANOFI-SYNTHELABO-A02200701068

PATIENT
  Age: 40 Year
  Sex: Male

DRUGS (2)
  1. STILNOX [Suspect]
     Indication: SLEEP DISORDER
     Dosage: UNK
     Route: 048
     Dates: start: 20060901
  2. COUMADIN [Interacting]
     Indication: PROPHYLAXIS
     Route: 048

REACTIONS (4)
  - DRUG INTERACTION [None]
  - GINGIVAL BLEEDING [None]
  - HAEMATOMA [None]
  - INTERNATIONAL NORMALISED RATIO INCREASED [None]
